FAERS Safety Report 23778513 (Version 1)
Quarter: 2024Q2

REPORT INFORMATION
  Report Type: Spontaneous
  Country: US (occurrence: None)
  Receive Date: 20240424
  Receipt Date: 20240424
  Transmission Date: 20240716
  Serious: Yes (Other)
  Sender: FDA-Public Use
  Company Number: None

PATIENT
  Sex: Male

DRUGS (1)
  1. REPATHA [Suspect]
     Active Substance: EVOLOCUMAB
     Indication: Hypercholesterolaemia
     Dosage: EVERY 14 DAYS SUBDERMAL?
     Dates: start: 20240420, end: 20240424

REACTIONS (4)
  - Injection site mass [None]
  - Injection site discolouration [None]
  - Discomfort [None]
  - Hypersensitivity [None]

NARRATIVE: CASE EVENT DATE: 20240420
